FAERS Safety Report 23841708 (Version 2)
Quarter: 2025Q2

REPORT INFORMATION
  Report Type: Spontaneous
  Country: US (occurrence: US)
  Receive Date: 20240510
  Receipt Date: 20250509
  Transmission Date: 20250717
  Serious: No
  Sender: COLLEGIUM PHARMACEUTICAL
  Company Number: US-COLLEGIUM PHARMACEUTICAL, INC.-20230600484

PATIENT

DRUGS (2)
  1. XTAMPZA ER [Suspect]
     Active Substance: OXYCODONE
     Indication: Pain
     Route: 065
  2. XTAMPZA ER [Suspect]
     Active Substance: OXYCODONE
     Indication: Back pain

REACTIONS (1)
  - Drug ineffective [Unknown]
